FAERS Safety Report 21264601 (Version 1)
Quarter: 2022Q3

REPORT INFORMATION
  Report Type: Spontaneous
  Country: CA (occurrence: None)
  Receive Date: 20220829
  Receipt Date: 20220829
  Transmission Date: 20221027
  Serious: Yes (Hospitalization)
  Sender: FDA-Public Use
  Company Number: CA-ROCHE-3167454

PATIENT
  Age: 41 Year
  Sex: Female

DRUGS (4)
  1. XELODA [Suspect]
     Active Substance: CAPECITABINE
     Indication: Breast cancer metastatic
     Route: 065
  2. NERLYNX [Suspect]
     Active Substance: NERATINIB
     Indication: Breast cancer metastatic
     Route: 065
  3. NERLYNX [Suspect]
     Active Substance: NERATINIB
     Route: 065
  4. NERLYNX [Suspect]
     Active Substance: NERATINIB
     Route: 065

REACTIONS (8)
  - Breast disorder [Unknown]
  - Breast neoplasm [Unknown]
  - Breast scan abnormal [Unknown]
  - Off label use [Unknown]
  - Palmar-plantar erythrodysaesthesia syndrome [Unknown]
  - Product intolerance [Unknown]
  - Skin mass [Unknown]
  - Staphylococcal infection [Unknown]
